FAERS Safety Report 21927649 (Version 3)
Quarter: 2023Q1

REPORT INFORMATION
  Report Type: Other
  Country: SK (occurrence: SK)
  Receive Date: 20230130
  Receipt Date: 20230302
  Transmission Date: 20230417
  Serious: Yes (Death, Hospitalization, Other)
  Sender: FDA-Public Use
  Company Number: SK-ROCHE-3272214

PATIENT
  Age: 54 Year
  Sex: Male

DRUGS (5)
  1. RITUXIMAB [Suspect]
     Active Substance: RITUXIMAB
     Indication: Epstein-Barr virus associated lymphoma
     Route: 065
  2. CYCLOPHOSPHAMIDE [Suspect]
     Active Substance: CYCLOPHOSPHAMIDE
     Indication: Epstein-Barr virus associated lymphoma
     Route: 065
  3. VINCRISTINE [Suspect]
     Active Substance: VINCRISTINE
     Indication: Epstein-Barr virus associated lymphoma
     Route: 065
  4. DOXORUBICIN [Suspect]
     Active Substance: DOXORUBICIN
     Indication: Epstein-Barr virus associated lymphoma
     Route: 065
  5. PREDNISONE [Suspect]
     Active Substance: PREDNISONE
     Indication: Epstein-Barr virus associated lymphoma
     Route: 065

REACTIONS (10)
  - Disease progression [Fatal]
  - Encephalitis viral [Unknown]
  - Febrile neutropenia [Recovering/Resolving]
  - Altered state of consciousness [Recovered/Resolved]
  - Ischaemic stroke [Unknown]
  - Cytomegalovirus infection [Recovering/Resolving]
  - Pneumonia [Unknown]
  - Pneumocystis jirovecii infection [Unknown]
  - Aspergillus infection [Unknown]
  - Epstein-Barr virus infection [Unknown]
